FAERS Safety Report 20448513 (Version 2)
Quarter: 2022Q3

REPORT INFORMATION
  Report Type: Spontaneous
  Country: JP (occurrence: JP)
  Receive Date: 20220209
  Receipt Date: 20220715
  Transmission Date: 20221027
  Serious: Yes (Other)
  Sender: FDA-Public Use
  Company Number: JP-GLAXOSMITHKLINE-JP2022JPN019854

PATIENT

DRUGS (6)
  1. SOTROVIMAB [Suspect]
     Active Substance: SOTROVIMAB
     Indication: COVID-19
     Dosage: 500 MG, QD
     Dates: start: 20220201, end: 20220201
  2. SODIUM CHLORIDE [Suspect]
     Active Substance: SODIUM CHLORIDE
     Dosage: UNK
  3. PENTASA TABLETS [Concomitant]
     Dosage: UNK
  4. BIOFERMIN TABLETS (BIFIDOBACTERIUM BIFIDUM) [Concomitant]
     Dosage: UNK
  5. CALONAL [Concomitant]
     Active Substance: ACETAMINOPHEN
     Dosage: UNK
  6. REMICADE [Concomitant]
     Active Substance: INFLIXIMAB
     Dosage: UNK, SINCE 10 YEARS AGO

REACTIONS (8)
  - Anaphylactic reaction [Recovered/Resolved]
  - Infusion related reaction [Recovered/Resolved]
  - Pruritus [Unknown]
  - Erythema [Recovered/Resolved]
  - Feeling cold [Unknown]
  - Hypoaesthesia [Recovered/Resolved]
  - Chills [Recovered/Resolved]
  - Asthenia [Recovered/Resolved]

NARRATIVE: CASE EVENT DATE: 20220201
